FAERS Safety Report 20585691 (Version 1)
Quarter: 2022Q1

REPORT INFORMATION
  Report Type: Report from Study
  Country: BR (occurrence: BR)
  Receive Date: 20220312
  Receipt Date: 20220312
  Transmission Date: 20220423
  Serious: Yes (Hospitalization, Other)
  Sender: FDA-Public Use
  Company Number: BR-ABBVIE-22K-020-4309224-00

PATIENT
  Age: 86 Year
  Sex: Male
  Weight: 60.5 kg

DRUGS (1)
  1. SKYRIZI [Suspect]
     Active Substance: RISANKIZUMAB-RZAA
     Indication: Psoriasis
     Route: 058
     Dates: end: 202201

REACTIONS (12)
  - COVID-19 [Recovered/Resolved]
  - Dyspnoea [Unknown]
  - Oxygen saturation decreased [Unknown]
  - Lung disorder [Recovering/Resolving]
  - Pneumonia bacterial [Recovered/Resolved]
  - Red blood cell count decreased [Recovering/Resolving]
  - Anaemia [Not Recovered/Not Resolved]
  - Diabetes mellitus [Not Recovered/Not Resolved]
  - Cough [Unknown]
  - Rash [Recovered/Resolved]
  - Skin hypertrophy [Not Recovered/Not Resolved]
  - Fatigue [Recovering/Resolving]

NARRATIVE: CASE EVENT DATE: 20220101
